FAERS Safety Report 23045645 (Version 2)
Quarter: 2023Q4

REPORT INFORMATION
  Report Type: Report from Study
  Country: US (occurrence: US)
  Receive Date: 20231009
  Receipt Date: 20231110
  Transmission Date: 20240110
  Serious: Yes (Hospitalization)
  Sender: FDA-Public Use
  Company Number: US-BIOVITRUM-2023-US-015487

PATIENT
  Age: 33 Year
  Sex: Male

DRUGS (2)
  1. KINERET [Suspect]
     Active Substance: ANAKINRA
     Indication: Product used for unknown indication
     Dosage: EVERY DAY (QF)
     Route: 058
  2. KINERET [Suspect]
     Active Substance: ANAKINRA
     Dosage: EVERY OTHER DAY
     Route: 058

REACTIONS (2)
  - Adverse drug reaction [Unknown]
  - Off label use [Unknown]
